FAERS Safety Report 17210904 (Version 2)
Quarter: 2020Q2

REPORT INFORMATION
  Report Type: Spontaneous
  Country: US (occurrence: US)
  Receive Date: 20191227
  Receipt Date: 20200605
  Transmission Date: 20200713
  Serious: No
  Sender: FDA-Public Use
  Company Number: US-ELI_LILLY_AND_COMPANY-US201912010796

PATIENT
  Age: 14 Year
  Sex: Male

DRUGS (1)
  1. HUMATROPE [Suspect]
     Active Substance: SOMATROPIN
     Dosage: UNK UNK, UNKNOWN
     Route: 065

REACTIONS (1)
  - Wrong patient received product [Not Recovered/Not Resolved]

NARRATIVE: CASE EVENT DATE: 20191218
